FAERS Safety Report 4918624-1 (Version None)
Quarter: 2006Q1

REPORT INFORMATION
  Report Type: 
  Country: None (occurrence: None)
  Receive Date: 20060221
  Receipt Date: 20060221
  Transmission Date: 20060701
  Serious: No
  Sender: FDA-Public Use
  Company Number: None

PATIENT
  Age: 36 Year
  Sex: Male
  Weight: 86.1834 kg

DRUGS (1)
  1. SEROQUEL [Suspect]
     Indication: BIPOLAR DISORDER
     Dosage: 600MG   HS  PO
     Route: 048
     Dates: start: 20050420, end: 20060219

REACTIONS (5)
  - BIPOLAR DISORDER [None]
  - DIABETES MELLITUS NON-INSULIN-DEPENDENT [None]
  - DISEASE RECURRENCE [None]
  - DRUG DOSE OMISSION [None]
  - ECONOMIC PROBLEM [None]
